FAERS Safety Report 9465719 (Version 1)
Quarter: 2013Q3

REPORT INFORMATION
  Report Type: Report from Study
  Country: AT (occurrence: AT)
  Receive Date: 20130820
  Receipt Date: 20130820
  Transmission Date: 20140515
  Serious: Yes (Other)
  Sender: FDA-Public Use
  Company Number: AT-BAYER-2013-099700

PATIENT
  Age: 88 Year
  Sex: Female

DRUGS (1)
  1. ASA [Suspect]
     Indication: PRODUCT USED FOR UNKNOWN INDICATION

REACTIONS (2)
  - Cardiac failure [None]
  - Atrial fibrillation [None]
